FAERS Safety Report 6152247-4 (Version None)
Quarter: 2009Q2

REPORT INFORMATION
  Report Type: 
  Country: None (occurrence: None)
  Receive Date: 20090410
  Receipt Date: 20090327
  Transmission Date: 20091009
  Serious: Yes (Hospitalization)
  Sender: FDA-Public Use
  Company Number: US-GENENTECH-280682

PATIENT
  Sex: Female

DRUGS (6)
  1. BEVACIZUMAB [Suspect]
     Indication: BREAST CANCER
     Route: 065
  2. DOXORUBICIN [Suspect]
     Indication: BREAST CANCER
     Dosage: UNK, Q21D
     Route: 042
     Dates: start: 20081110
  3. DOCETAXEL [Suspect]
     Indication: BREAST CANCER
     Dosage: UNK, Q21D
     Route: 042
     Dates: start: 20081110
  4. CYCLOPHOSPHAMIDE [Suspect]
     Indication: BREAST CANCER
     Dosage: UNK, Q21D
     Route: 042
     Dates: start: 20081110
  5. MAXALT [Concomitant]
     Indication: DRUG USE FOR UNKNOWN INDICATION
     Dosage: UNK
     Dates: start: 19980101
  6. PROTONIX [Concomitant]
     Indication: DRUG USE FOR UNKNOWN INDICATION
     Dosage: UNK
     Dates: start: 20081223

REACTIONS (2)
  - PANCYTOPENIA [None]
  - PYREXIA [None]
